FAERS Safety Report 9693108 (Version 1)
Quarter: 2013Q4

REPORT INFORMATION
  Report Type: Spontaneous
  Country: DE (occurrence: DE)
  Receive Date: 20131118
  Receipt Date: 20131118
  Transmission Date: 20140711
  Serious: Yes (Hospitalization)
  Sender: FDA-Public Use
  Company Number: DE-ELI_LILLY_AND_COMPANY-DE201311001612

PATIENT
  Age: 56 Year
  Sex: Male
  Weight: 99 kg

DRUGS (5)
  1. ZYPREXA [Suspect]
     Indication: DEPRESSION
     Dosage: 15 MG, UNKNOWN
     Route: 048
     Dates: start: 20110315
  2. ZYPREXA [Suspect]
     Dosage: 5 MG, UNKNOWN
     Route: 048
     Dates: end: 20111210
  3. LYRICA [Suspect]
     Indication: PRODUCT USED FOR UNKNOWN INDICATION
     Dosage: 250 MG, UNKNOWN
     Route: 065
     Dates: start: 200912
  4. ATOSIL /00033002/ [Suspect]
     Indication: PRODUCT USED FOR UNKNOWN INDICATION
     Dosage: 100 MG, UNKNOWN
     Route: 065
     Dates: start: 200812
  5. ESIDRIX [Concomitant]
     Indication: PRODUCT USED FOR UNKNOWN INDICATION
     Dosage: 25 MG, UNKNOWN
     Route: 065
     Dates: start: 2008

REACTIONS (5)
  - Panic attack [Unknown]
  - Depression [Unknown]
  - Weight increased [Recovering/Resolving]
  - Appetite disorder [Recovering/Resolving]
  - Off label use [Recovered/Resolved]
